FAERS Safety Report 11783435 (Version 1)
Quarter: 2015Q4

REPORT INFORMATION
  Report Type: Spontaneous
  Country: US (occurrence: US)
  Receive Date: 20151127
  Receipt Date: 20151127
  Transmission Date: 20160305
  Serious: No
  Sender: FDA-Public Use
  Company Number: US-BAYER-2015-476037

PATIENT
  Age: 68 Year
  Sex: Female
  Weight: 65.76 kg

DRUGS (4)
  1. MIRALAX [Suspect]
     Active Substance: POLYETHYLENE GLYCOL 3350
     Indication: CONSTIPATION
     Dosage: 1/2, BID
     Route: 048
     Dates: start: 2014
  2. CALCIA [CALCIUM] [Concomitant]
  3. PROPRANOLOL [Concomitant]
     Active Substance: PROPRANOLOL\PROPRANOLOL HYDROCHLORIDE
  4. VITAMIN A [Concomitant]
     Active Substance: VITAMIN A

REACTIONS (2)
  - Drug prescribing error [None]
  - Product use issue [None]

NARRATIVE: CASE EVENT DATE: 2014
